FAERS Safety Report 15543727 (Version 1)
Quarter: 2018Q4

REPORT INFORMATION
  Report Type: Spontaneous
  Country: US (occurrence: US)
  Receive Date: 20181023
  Receipt Date: 20181023
  Transmission Date: 20190205
  Serious: No
  Sender: FDA-Public Use
  Company Number: US-GLAXOSMITHKLINE-US2018GSK187200

PATIENT
  Sex: Female

DRUGS (3)
  1. PROVENTIL [Suspect]
     Active Substance: ALBUTEROL
     Indication: HYPERSENSITIVITY
  2. VENTOLIN HFA [Concomitant]
     Active Substance: ALBUTEROL SULFATE
     Route: 055
  3. PROVENTIL [Suspect]
     Active Substance: ALBUTEROL
     Indication: ASTHMA

REACTIONS (4)
  - Visual impairment [Unknown]
  - Dizziness [Unknown]
  - Syncope [Unknown]
  - Adverse reaction [Unknown]
